FAERS Safety Report 8013027-8 (Version None)
Quarter: 2011Q4

REPORT INFORMATION
  Report Type: 
  Country: None (occurrence: None)
  Receive Date: 20111229
  Receipt Date: 20111219
  Transmission Date: 20120403
  Serious: Yes (Other)
  Sender: FDA-Public Use
  Company Number: GB-TEVA-315071ISR

PATIENT
  Age: 42 Year
  Sex: Female

DRUGS (3)
  1. ANTITUBERCULARS [Concomitant]
  2. PREDNISOLONE [Suspect]
  3. ANTIRETROVIRALS [Concomitant]

REACTIONS (4)
  - PNEUMOPERITONEUM [None]
  - NEUTROPENIC SEPSIS [None]
  - CAECITIS [None]
  - PNEUMATOSIS INTESTINALIS [None]
